FAERS Safety Report 24793203 (Version 1)
Quarter: 2024Q4

REPORT INFORMATION
  Report Type: Spontaneous
  Country: FR (occurrence: FR)
  Receive Date: 20241231
  Receipt Date: 20241231
  Transmission Date: 20250115
  Serious: Yes (Hospitalization)
  Sender: ACCORD
  Company Number: None

PATIENT
  Age: 72 Year
  Sex: Female
  Weight: 92 kg

DRUGS (11)
  1. PACLITAXEL [Suspect]
     Active Substance: PACLITAXEL
     Indication: Breast cancer recurrent
     Dates: start: 20240429
  2. PREGABALIN [Suspect]
     Active Substance: PREGABALIN
     Indication: Peripheral sensory neuropathy
     Dosage: STRENGTH: 100 MG
     Dates: start: 20241007, end: 20241022
  3. AVASTIN [Suspect]
     Active Substance: BEVACIZUMAB
     Indication: Breast cancer recurrent
     Dates: start: 20240429
  4. CANDESARTAN CILEXETIL [Concomitant]
     Active Substance: CANDESARTAN CILEXETIL
  5. PRAZEPAM [Concomitant]
     Active Substance: PRAZEPAM
  6. ZOPICLONE [Concomitant]
     Active Substance: ZOPICLONE
  7. CLOMIPRAMINE [Concomitant]
     Active Substance: CLOMIPRAMINE
     Dosage: STRENGTH: 25 MG
  8. PRAVASTATIN SODIUM [Concomitant]
     Active Substance: PRAVASTATIN SODIUM
  9. CYAMEMAZINE [Concomitant]
     Active Substance: CYAMEMAZINE
  10. VOGALEN [Concomitant]
  11. CLOMIPRAMINE [Concomitant]
     Active Substance: CLOMIPRAMINE
     Dosage: STRENGTH: 75 MG

REACTIONS (1)
  - Hypertensive crisis [Recovered/Resolved]

NARRATIVE: CASE EVENT DATE: 20241019
